FAERS Safety Report 15727107 (Version 1)
Quarter: 2018Q4

REPORT INFORMATION
  Report Type: Report from Study
  Country: RU (occurrence: RU)
  Receive Date: 20181217
  Receipt Date: 20181217
  Transmission Date: 20190205
  Serious: Yes (Other)
  Sender: FDA-Public Use
  Company Number: RU-TEVA-2018-RU-987328

PATIENT
  Age: 37 Year
  Sex: Male
  Weight: 183 kg

DRUGS (1)
  1. CINQEIRO [Suspect]
     Active Substance: RESLIZUMAB
     Dosage: 1 DOSAGE FORM = 1 VIAL. LAST DOSE ADMINISTERED ON 23-NOV-2018
     Route: 042
     Dates: start: 20180828

REACTIONS (2)
  - Dermatitis [Not Recovered/Not Resolved]
  - Asthma [Recovered/Resolved]

NARRATIVE: CASE EVENT DATE: 201811
